FAERS Safety Report 7537720-6 (Version None)
Quarter: 2011Q2

REPORT INFORMATION
  Report Type: 
  Country: None (occurrence: None)
  Receive Date: 20110609
  Receipt Date: 20071107
  Transmission Date: 20111010
  Serious: Yes (Other)
  Sender: FDA-Public Use
  Company Number: PHHO2007IT15620

PATIENT
  Sex: Male
  Weight: 66 kg

DRUGS (1)
  1. GLEEVEC [Suspect]
     Dosage: NO TREATMENT

REACTIONS (2)
  - METASTASES TO BONE [None]
  - PROSTATE CANCER [None]
